FAERS Safety Report 4353837-1 (Version None)
Quarter: 2004Q2

REPORT INFORMATION
  Report Type: 
  Country: None (occurrence: None)
  Receive Date: 20040430
  Receipt Date: 20040420
  Transmission Date: 20050107
  Serious: Yes (Hospitalization, Other)
  Sender: FDA-Public Use
  Company Number: FR-JNJFOC-20040303025

PATIENT
  Age: 48 Year
  Sex: Female
  Weight: 68 kg

DRUGS (6)
  1. REMICADE [Suspect]
     Indication: PSORIATIC ARTHROPATHY
     Dosage: INTRAVENOUS
     Route: 042
     Dates: start: 20010101
  2. METHOTREXATE [Suspect]
     Indication: PSORIATIC ARTHROPATHY
     Dosage: 15 MG 1 IN 1 WEEK ORAL
     Route: 048
     Dates: start: 20000601
  3. SPECIAFOLDINE (TABLETS) FOLIC ACID [Concomitant]
  4. FOSAMAX [Concomitant]
  5. OROCAL D3(LEKOVIT CA) [Concomitant]
  6. RIVOTRIL (CLONAZEPAM) DROPS [Concomitant]

REACTIONS (2)
  - CERVICAL DYSPLASIA [None]
  - CERVICITIS HUMAN PAPILLOMA VIRUS [None]
